FAERS Safety Report 22295876 (Version 1)
Quarter: 2023Q2

REPORT INFORMATION
  Report Type: Spontaneous
  Country: CN (occurrence: None)
  Receive Date: 20230508
  Receipt Date: 20230508
  Transmission Date: 20230721
  Serious: Yes (Other)
  Sender: FDA-Public Use
  Company Number: CN-ROCHE-3344799

PATIENT
  Age: 43 Year
  Sex: Male
  Weight: 57 kg

DRUGS (26)
  1. AVASTIN [Suspect]
     Active Substance: BEVACIZUMAB
     Indication: Adenocarcinoma of colon
     Route: 065
     Dates: start: 20190717
  2. AVASTIN [Suspect]
     Active Substance: BEVACIZUMAB
     Route: 041
     Dates: end: 202202
  3. AVASTIN [Suspect]
     Active Substance: BEVACIZUMAB
     Route: 065
     Dates: start: 20220314
  4. XELODA [Suspect]
     Active Substance: CAPECITABINE
     Indication: Adenocarcinoma of colon
     Dosage: D1-14, 21 DAYS AS A CYCLE, TREATMENT FOR 6 MONTHS
     Route: 048
     Dates: start: 202002
  5. XELODA [Suspect]
     Active Substance: CAPECITABINE
     Dosage: D1-14, 21 DAYS AS A CYCLE
     Route: 065
     Dates: start: 20220314
  6. OXALIPLATIN [Concomitant]
     Active Substance: OXALIPLATIN
     Indication: Adenocarcinoma of colon
     Dates: start: 20190717
  7. OXALIPLATIN [Concomitant]
     Active Substance: OXALIPLATIN
     Route: 041
     Dates: start: 201908, end: 202001
  8. OXALIPLATIN [Concomitant]
     Active Substance: OXALIPLATIN
     Route: 041
     Dates: start: 202011, end: 202102
  9. OXALIPLATIN [Concomitant]
     Active Substance: OXALIPLATIN
     Dates: start: 20211027
  10. OXALIPLATIN [Concomitant]
     Active Substance: OXALIPLATIN
     Route: 041
     Dates: end: 202202
  11. LEUCOVORIN CALCIUM [Concomitant]
     Active Substance: LEUCOVORIN CALCIUM
     Indication: Adenocarcinoma of colon
     Dates: start: 20190717
  12. LEUCOVORIN CALCIUM [Concomitant]
     Active Substance: LEUCOVORIN CALCIUM
     Route: 041
     Dates: start: 201908, end: 202001
  13. LEUCOVORIN CALCIUM [Concomitant]
     Active Substance: LEUCOVORIN CALCIUM
     Route: 041
     Dates: start: 202011, end: 202102
  14. LEUCOVORIN CALCIUM [Concomitant]
     Active Substance: LEUCOVORIN CALCIUM
     Dates: start: 20211027
  15. LEUCOVORIN CALCIUM [Concomitant]
     Active Substance: LEUCOVORIN CALCIUM
     Route: 041
     Dates: end: 202202
  16. FLUOROURACIL [Concomitant]
     Active Substance: FLUOROURACIL
     Indication: Adenocarcinoma of colon
     Dates: start: 20190717
  17. FLUOROURACIL [Concomitant]
     Active Substance: FLUOROURACIL
     Dosage: 0.5G IVGTT D1 + 4G CIV 46H D1
     Route: 042
     Dates: start: 201908, end: 202001
  18. FLUOROURACIL [Concomitant]
     Active Substance: FLUOROURACIL
     Dosage: CIV 46H
     Route: 042
     Dates: start: 202011, end: 202102
  19. FLUOROURACIL [Concomitant]
     Active Substance: FLUOROURACIL
     Dates: start: 202102
  20. FLUOROURACIL [Concomitant]
     Active Substance: FLUOROURACIL
     Dosage: CIV 46H
     Route: 042
     Dates: end: 202202
  21. CETUXIMAB [Concomitant]
     Active Substance: CETUXIMAB
     Indication: Adenocarcinoma of colon
     Route: 041
     Dates: start: 201908, end: 202001
  22. CETUXIMAB [Concomitant]
     Active Substance: CETUXIMAB
     Route: 041
     Dates: start: 202011, end: 202102
  23. CETUXIMAB [Concomitant]
     Active Substance: CETUXIMAB
     Route: 041
     Dates: start: 202104, end: 202110
  24. IRINOTECAN [Concomitant]
     Active Substance: IRINOTECAN
     Indication: Adenocarcinoma of colon
     Route: 041
     Dates: start: 202011, end: 202102
  25. IRINOTECAN [Concomitant]
     Active Substance: IRINOTECAN
     Dates: start: 20211027
  26. IRINOTECAN [Concomitant]
     Active Substance: IRINOTECAN
     Route: 041
     Dates: end: 202202

REACTIONS (3)
  - Myelosuppression [Unknown]
  - Rash [Unknown]
  - Diarrhoea [Unknown]
